FAERS Safety Report 6362496-8 (Version None)
Quarter: 2009Q3

REPORT INFORMATION
  Report Type: 
  Country: None (occurrence: None)
  Receive Date: 20090918
  Receipt Date: 20090603
  Transmission Date: 20100115
  Serious: No
  Sender: FDA-Public Use
  Company Number: US-ABBOTT-09P-163-0577592-00

PATIENT
  Sex: Male

DRUGS (1)
  1. HUMIRA [Suspect]
     Indication: CROHN'S DISEASE
     Dosage: (160MG DAY 1)
     Dates: start: 20090602

REACTIONS (4)
  - ABDOMINAL PAIN [None]
  - ASTHENIA [None]
  - HEADACHE [None]
  - NAUSEA [None]
